FAERS Safety Report 17699173 (Version 2)
Quarter: 2021Q2

REPORT INFORMATION
  Report Type: Report from Study
  Country: DE (occurrence: DE)
  Receive Date: 20200423
  Receipt Date: 20210504
  Transmission Date: 20210716
  Serious: Yes (Hospitalization)
  Sender: FDA-Public Use
  Company Number: DE-BIOGEN-2020BI00865010

PATIENT
  Age: 47 Year
  Sex: Female
  Weight: 74 kg

DRUGS (1)
  1. TECFIDERA [Suspect]
     Active Substance: DIMETHYL FUMARATE
     Indication: MULTIPLE SCLEROSIS
     Route: 048
     Dates: start: 20170120

REACTIONS (1)
  - Cardiovascular disorder [Recovered/Resolved]

NARRATIVE: CASE EVENT DATE: 201903
